FAERS Safety Report 4473953-3 (Version None)
Quarter: 2004Q4

REPORT INFORMATION
  Report Type: 
  Country: None (occurrence: None)
  Receive Date: 20041014
  Receipt Date: 20041004
  Transmission Date: 20050328
  Serious: Yes (Hospitalization)
  Sender: FDA-Public Use
  Company Number: GB-JNJFOC-20041001070

PATIENT
  Sex: Female

DRUGS (11)
  1. REMICADE [Suspect]
     Dosage: 06.08.04 DOSE INCREASED FROM 270MG TO 440MG.
     Route: 042
  2. REMICADE [Suspect]
     Indication: RHEUMATOID ARTHRITIS
     Route: 042
  3. METHOTREXATE [Concomitant]
  4. PREDNISOLONE [Concomitant]
  5. MOBIC [Concomitant]
  6. RANITIDINE [Concomitant]
  7. TIBOLONE [Concomitant]
  8. FOLIC ACID [Concomitant]
  9. REMEDEINE [Concomitant]
  10. REMEDEINE [Concomitant]
  11. AMITRIPTYLINE HCL [Concomitant]

REACTIONS (2)
  - DRUG INEFFECTIVE [None]
  - SUPRAVENTRICULAR TACHYCARDIA [None]
